FAERS Safety Report 4691637-3 (Version None)
Quarter: 2005Q2

REPORT INFORMATION
  Report Type: 
  Country: None (occurrence: None)
  Receive Date: 20050616
  Receipt Date: 20050606
  Transmission Date: 20051028
  Serious: Yes (Other)
  Sender: FDA-Public Use
  Company Number: US-JNJFOC-20050504817

PATIENT
  Age: 77 Year
  Sex: Female

DRUGS (9)
  1. REMICADE [Suspect]
     Indication: RHEUMATOID ARTHRITIS
     Route: 042
  2. HUMALOG [Concomitant]
  3. PREMARIN [Concomitant]
  4. PREDNISONE TAB [Concomitant]
  5. OSCAL [Concomitant]
  6. CELEBREX [Concomitant]
  7. LANTUS [Concomitant]
  8. NEURONTIN [Concomitant]
  9. PRUMDON [Concomitant]

REACTIONS (2)
  - NEUROPATHY PERIPHERAL [None]
  - RETINAL VEIN OCCLUSION [None]
